FAERS Safety Report 25690987 (Version 1)
Quarter: 2025Q3

REPORT INFORMATION
  Report Type: Spontaneous
  Country: US (occurrence: None)
  Receive Date: 20250817
  Receipt Date: 20250817
  Transmission Date: 20251021
  Serious: No
  Sender: FDA-CTU
  Company Number: None

PATIENT
  Age: 44 Year
  Sex: Female

DRUGS (3)
  1. BOTOX [Suspect]
     Active Substance: ONABOTULINUMTOXINA
     Indication: Weight decreased
  2. DYSPORT [Suspect]
     Active Substance: ABOBOTULINUMTOXINA
  3. TIRZEPATIDE [Suspect]
     Active Substance: TIRZEPATIDE

REACTIONS (9)
  - Suspected counterfeit product [None]
  - Drug monitoring procedure not performed [None]
  - Product prescribing issue [None]
  - Injection site pain [None]
  - Drug effect less than expected [None]
  - Decreased appetite [None]
  - Anxiety [None]
  - Palpitations [None]
  - Insomnia [None]

NARRATIVE: CASE EVENT DATE: 20250418
